FAERS Safety Report 13418693 (Version 2)
Quarter: 2017Q2

REPORT INFORMATION
  Report Type: Spontaneous
  Country: MX (occurrence: MX)
  Receive Date: 20170406
  Receipt Date: 20170428
  Transmission Date: 20170830
  Serious: Yes (Other)
  Sender: FDA-Public Use
  Company Number: MX-BAXTER-2017BAX013974

PATIENT

DRUGS (4)
  1. SVOFAST [Suspect]
     Active Substance: SEVOFLURANE
     Dosage: DOSE INCREASED
     Route: 055
     Dates: start: 201702
  2. FENTANYLO [Concomitant]
     Indication: ANAESTHESIA PROCEDURE
     Dosage: 4 MCG X KG
     Route: 065
  3. CISATRACURIO [Concomitant]
     Indication: ANAESTHESIA PROCEDURE
     Route: 065
  4. SVOFAST [Suspect]
     Active Substance: SEVOFLURANE
     Indication: ANAESTHESIA PROCEDURE
     Route: 055
     Dates: start: 201702

REACTIONS (5)
  - Drug effect decreased [Recovered/Resolved]
  - Poor quality drug administered [Unknown]
  - Heart rate increased [Recovered/Resolved]
  - Product odour abnormal [Unknown]
  - Blood pressure increased [Recovered/Resolved]

NARRATIVE: CASE EVENT DATE: 201702
